FAERS Safety Report 8799118 (Version 1)
Quarter: 2012Q4

REPORT INFORMATION
  Report Type: 
  Country: US (occurrence: US)
  Receive Date: 20120920
  Receipt Date: 20120920
  Transmission Date: 20130627
  Serious: No
  Sender: FDA-Public Use
  Company Number: US-ASTRAZENECA-2011SE77964

PATIENT
  Age: 63 Year
  Sex: Female
  Weight: 90.7 kg

DRUGS (10)
  1. LISINOPRIL [Suspect]
     Route: 048
  2. SEROQUEL [Suspect]
     Indication: BIPOLAR DISORDER
     Route: 048
  3. SEROQUEL [Suspect]
     Indication: ANXIETY
     Route: 048
  4. SEROQUEL [Suspect]
     Indication: SLEEP DISORDER
     Route: 048
  5. CYMBALTA [Suspect]
     Route: 065
  6. SINGULAIR [Suspect]
     Route: 065
  7. PERCOCET [Suspect]
     Route: 065
  8. METFORMIN [Suspect]
     Route: 065
  9. DIAZEPAM [Suspect]
     Route: 065
  10. SIMVASTATIN [Suspect]
     Route: 065

REACTIONS (2)
  - Head injury [Unknown]
  - Dizziness [Unknown]
